FAERS Safety Report 15474937 (Version 1)
Quarter: 2018Q4

REPORT INFORMATION
  Report Type: Spontaneous
  Country: US (occurrence: US)
  Receive Date: 20181008
  Receipt Date: 20181008
  Transmission Date: 20190205
  Serious: Yes (Other)
  Sender: FDA-Public Use
  Company Number: US-TEVA-2018-US-961730

PATIENT
  Sex: Male

DRUGS (2)
  1. EFAVIRENZ/EMTRICITABINE/TENOFOVIR DESOPROXIL [Concomitant]
     Indication: HIV INFECTION
     Route: 065
  2. NICOTINIC ACID [Suspect]
     Active Substance: NIACIN
     Dosage: SUSTAINED RELEASE; MOST OF THE BOTTLE OVER THE COURSE OF A FEW DAYS
     Route: 048

REACTIONS (2)
  - Hepatotoxicity [Recovered/Resolved]
  - Intentional product misuse [Recovered/Resolved]
